FAERS Safety Report 6706883-4 (Version None)
Quarter: 2010Q2

REPORT INFORMATION
  Report Type: 
  Country: None (occurrence: None)
  Receive Date: 20100430
  Receipt Date: 20100430
  Transmission Date: 20101027
  Serious: Yes (Life-Threatening, Hospitalization)
  Sender: FDA-Public Use
  Company Number: None

PATIENT
  Age: 42 Year
  Sex: Male
  Weight: 80.2867 kg

DRUGS (2)
  1. DIVALPROEX SODIUM [Suspect]
     Indication: CONVULSION
     Dosage: 2 TABLETS 2X PO
     Route: 048
     Dates: start: 20100416, end: 20100426
  2. PHENYTOIN SODIUM [Suspect]
     Indication: CONVULSION
     Dosage: 5 CAPSULES 1X PO
     Route: 048
     Dates: start: 20100416, end: 20100430

REACTIONS (14)
  - AMNESIA [None]
  - ASTHENIA [None]
  - BALANCE DISORDER [None]
  - COMMUNICATION DISORDER [None]
  - CONFUSIONAL STATE [None]
  - CONVULSION [None]
  - DISTURBANCE IN ATTENTION [None]
  - FATIGUE [None]
  - HYPERCHLORHYDRIA [None]
  - IRRITABILITY [None]
  - MUSCULAR WEAKNESS [None]
  - REGURGITATION [None]
  - TREMOR [None]
  - VOMITING [None]
